FAERS Safety Report 5160678-4 (Version None)
Quarter: 2006Q4

REPORT INFORMATION
  Report Type: 
  Country: None (occurrence: None)
  Receive Date: 20061121
  Receipt Date: 20061106
  Transmission Date: 20070319
  Serious: Yes (Hospitalization)
  Sender: FDA-Public Use
  Company Number: 232180

PATIENT
  Age: 64 Year
  Sex: Male
  Weight: 71.9 kg

DRUGS (19)
  1. AVASTIN [Suspect]
     Indication: COLORECTAL CANCER METASTATIC
     Dosage: 780 MG, DAYS 1 + 15, INTRAVENOUS
     Route: 042
     Dates: start: 20060920
  2. OXALIPLATIN [Suspect]
     Indication: COLORECTAL CANCER METASTATIC
     Dosage: 30 MG, DAYS 1 + 15, INTRAVENOUS
     Route: 042
     Dates: start: 20060920
  3. FLUOROURACIL [Suspect]
     Indication: COLORECTAL CANCER METASTATIC
     Dosage: SEE IMAGE
     Route: 040
     Dates: start: 20060920
  4. FLUOROURACIL [Suspect]
     Indication: COLORECTAL CANCER METASTATIC
     Dosage: SEE IMAGE
     Route: 040
     Dates: start: 20060920
  5. LEUCOVORIN CALCIUM [Suspect]
     Indication: COLORECTAL CANCER METASTATIC
     Dosage: 1552 MG  DAYS 1+15, IV
     Route: 042
     Dates: start: 20060920
  6. ASCORBIC ACID [Concomitant]
  7. CAPSAICIN (CAPSAICIN) [Concomitant]
  8. DOCUSATE SODIUM (DOCUSATE SODIUM) [Concomitant]
  9. LACTULOSE [Concomitant]
  10. ACETAMINOPHEN [Concomitant]
  11. SIMETHICONE (SIMETHICONE) [Concomitant]
  12. AMIODARONE HCL [Concomitant]
  13. ASA (ACETYLSALICYLIC ACID) (ASPIRIN) [Concomitant]
  14. FLUVASTATIN (FLUVASTATIN) [Concomitant]
  15. HYDROCHLOROTHIAZIDE [Concomitant]
  16. IPRATROPIUM (IPRATROPIUM BROMIDE) [Concomitant]
  17. LEVALBUTEROL (LEVALBUTEROL HYDROCHLORIDE) [Concomitant]
  18. SALMETEROL (SALMETEROL) [Concomitant]
  19. TOBRAMYCIN + DEXAMETHASONE EYE DROPS (DEXAMETHASONE, TOBRAMYCIN) [Concomitant]

REACTIONS (3)
  - NEUTROPENIA [None]
  - PYREXIA [None]
  - WHITE BLOOD CELL COUNT DECREASED [None]
